FAERS Safety Report 6405781-3 (Version None)
Quarter: 2009Q4

REPORT INFORMATION
  Report Type: 
  Country: None (occurrence: None)
  Receive Date: 20091016
  Receipt Date: 20091016
  Transmission Date: 20100525
  Serious: Yes (Other)
  Sender: FDA-Public Use
  Company Number: None

PATIENT
  Age: 42 Year
  Sex: Female

DRUGS (2)
  1. LAMOTRIGINE [Suspect]
     Indication: BIPOLAR DISORDER
     Dosage: 300MG QD PO
     Route: 048
     Dates: start: 20071001, end: 20090723
  2. LAMOTRIGINE [Suspect]
     Indication: BIPOLAR DISORDER
     Dosage: 300MG QD PO
     Route: 048
     Dates: start: 20090401, end: 20090723

REACTIONS (1)
  - HEPATOMEGALY [None]
